FAERS Safety Report 6608152-X (Version None)
Quarter: 2010Q1

REPORT INFORMATION
  Report Type: 
  Country: None (occurrence: None)
  Receive Date: 20100301
  Receipt Date: 20100218
  Transmission Date: 20100710
  Serious: Yes (Hospitalization, Other)
  Sender: FDA-Public Use
  Company Number: US-BRISTOL-MYERS SQUIBB COMPANY-14984793

PATIENT
  Age: 56 Year
  Sex: Female
  Weight: 68 kg

DRUGS (2)
  1. CYCLOPHOSPHAMIDE [Suspect]
     Indication: NEOPLASM
     Dosage: OVER 60MIN ON DAY 3 ON 02-NOV-2009 DOSE REDUCED
     Route: 042
     Dates: start: 20090921
  2. DOXORUBICIN HCL [Suspect]
     Dosage: OVER 15MIN ON DAY 3 DOSE REDUCED ON 02-NOV-2009-ONGOING
     Route: 042
     Dates: start: 20090921

REACTIONS (4)
  - BLOOD CREATININE ABNORMAL [None]
  - DEHYDRATION [None]
  - HAEMOGLOBIN ABNORMAL [None]
  - HYPOTENSION [None]
